FAERS Safety Report 14024936 (Version 1)
Quarter: 2017Q3

REPORT INFORMATION
  Report Type: Spontaneous
  Country: FR (occurrence: FR)
  Receive Date: 20170929
  Receipt Date: 20170929
  Transmission Date: 20171128
  Serious: Yes (Other)
  Sender: FDA-Public Use
  Company Number: FR-MERCK KGAA-2028248

PATIENT
  Age: 74 Year
  Sex: Female

DRUGS (6)
  1. NOVOTHYROX [Suspect]
     Active Substance: LEVOTHYROXINE SODIUM
     Indication: THYROIDECTOMY
     Route: 048
     Dates: start: 201707
  2. DIAMOX SEQUELS [Concomitant]
     Active Substance: ACETAZOLAMIDE
  3. AERIUS [Concomitant]
     Active Substance: DESLORATADINE
  4. DOLIPRANE [Suspect]
     Active Substance: ACETAMINOPHEN
  5. ZOLTUM [Concomitant]
     Active Substance: OMEPRAZOLE
  6. COVERSYL [Concomitant]
     Active Substance: PERINDOPRIL

REACTIONS (7)
  - Arthralgia [Not Recovered/Not Resolved]
  - Nausea [Not Recovered/Not Resolved]
  - Muscle spasms [Not Recovered/Not Resolved]
  - Vomiting [Not Recovered/Not Resolved]
  - Constipation [Not Recovered/Not Resolved]
  - Myalgia [Not Recovered/Not Resolved]
  - Fatigue [Not Recovered/Not Resolved]

NARRATIVE: CASE EVENT DATE: 201708
